FAERS Safety Report 25445913 (Version 1)
Quarter: 2025Q2

REPORT INFORMATION
  Report Type: Report from Study
  Country: IT (occurrence: IT)
  Receive Date: 20250617
  Receipt Date: 20250617
  Transmission Date: 20250717
  Serious: Yes (Other)
  Sender: Norvium Bioscience
  Company Number: IT-Norvium Bioscience LLC-080272

PATIENT
  Age: 24 Month
  Sex: Female

DRUGS (2)
  1. GEMCITABINE [Suspect]
     Active Substance: GEMCITABINE
     Indication: Glioma
     Dosage: AS A 100 MIN INFUSION
  2. OXALIPLATIN [Suspect]
     Active Substance: OXALIPLATIN
     Indication: Glioma
     Dosage: AS A 2 H INFUSION

REACTIONS (3)
  - Thrombocytopenia [Unknown]
  - Haematotoxicity [Unknown]
  - Febrile neutropenia [Unknown]
